FAERS Safety Report 5031581-5 (Version None)
Quarter: 2006Q2

REPORT INFORMATION
  Report Type: 
  Country: None (occurrence: None)
  Receive Date: 20060621
  Receipt Date: 20060602
  Transmission Date: 20061013
  Serious: Yes (Hospitalization)
  Sender: FDA-Public Use
  Company Number: JP-GLAXOSMITHKLINE-B0426428B

PATIENT

DRUGS (3)
  1. PAXIL [Suspect]
     Dosage: 120MG PER DAY
     Dates: start: 20060601, end: 20060601
  2. DEPAS [Concomitant]
     Dosage: 1MG PER DAY
     Dates: start: 20060601, end: 20060601
  3. RIZE [Concomitant]
     Dosage: 6U PER DAY
     Dates: start: 20060601, end: 20060601

REACTIONS (2)
  - DRUG EXPOSURE DURING PREGNANCY [None]
  - RESPIRATORY DISORDER [None]
